FAERS Safety Report 4329002-0 (Version None)
Quarter: 2004Q1

REPORT INFORMATION
  Report Type: 
  Country: None (occurrence: None)
  Receive Date: 20040329
  Receipt Date: 20040123
  Transmission Date: 20041129
  Serious: No
  Sender: FDA-Public Use
  Company Number: 04P-163-0248151-00

PATIENT
  Age: 64 Year
  Sex: Female
  Weight: 88.4514 kg

DRUGS (13)
  1. HUMIRA [Suspect]
     Indication: RHEUMATOID ARTHRITIS
     Dosage: 40 MG, 1 IN 2 WK, SUBCUTANEOUS
     Route: 058
     Dates: start: 20040106
  2. METHOTREXATE [Concomitant]
  3. PREDNISONE [Concomitant]
  4. FOLIC ACID [Concomitant]
  5. ASPIRIN [Concomitant]
  6. CALCIUM WITH VITAMIN D [Concomitant]
  7. MULTI-VITAMINS [Concomitant]
  8. GLIMEPIRIDE [Concomitant]
  9. GLUCOPHAGE [Concomitant]
  10. ATENOLOL [Concomitant]
  11. ENALAPRIL MALEATE [Concomitant]
  12. HYDROCHLOROTHIAZIDE [Concomitant]
  13. GABAPENTIN [Concomitant]

REACTIONS (2)
  - ARTHRALGIA [None]
  - JOINT STIFFNESS [None]
